FAERS Safety Report 8413609-5 (Version None)
Quarter: 2012Q2

REPORT INFORMATION
  Report Type: 
  Country: None (occurrence: None)
  Receive Date: 20120605
  Receipt Date: 20120525
  Transmission Date: 20120825
  Serious: Yes (Hospitalization)
  Sender: FDA-Public Use
  Company Number: FR-ROCHE-1072340

PATIENT
  Sex: Female

DRUGS (2)
  1. ROCEPHIN [Suspect]
     Indication: BRONCHITIS
     Dates: start: 20120301, end: 20120308
  2. PENTOXIFYLLINE [Interacting]
     Indication: PULMONARY EMBOLISM
     Route: 048
     Dates: end: 20120308

REACTIONS (2)
  - DRUG INTERACTION [None]
  - HAEMATOMA [None]
